FAERS Safety Report 10051155 (Version 3)
Quarter: 2014Q2

REPORT INFORMATION
  Report Type: Spontaneous
  Country: US (occurrence: US)
  Receive Date: 20140401
  Receipt Date: 20140505
  Transmission Date: 20141212
  Serious: No
  Sender: FDA-Public Use
  Company Number: US-GILEAD-2014-0097679

PATIENT
  Age: 43 Year
  Sex: Male

DRUGS (13)
  1. SOVALDI [Suspect]
     Indication: HEPATITIS C
     Dosage: 400 MG, QD
     Route: 048
     Dates: start: 20140213
  2. RIBAVIRIN [Concomitant]
     Indication: HEPATITIS C
     Dosage: 400 MG, BID
     Route: 048
     Dates: start: 20140213
  3. MODIFIED CSA [Concomitant]
     Indication: IMMUNOSUPPRESSION
     Dosage: 50 MG, BID
     Route: 048
  4. INSULIN [Concomitant]
  5. XARELTO [Concomitant]
     Indication: ANTICOAGULANT THERAPY
     Dosage: 15 MG, QD
  6. ADCIRCA [Concomitant]
     Indication: PULMONARY HYPERTENSION
     Dosage: 40 MG, QD
  7. TORSEMIDE [Concomitant]
     Indication: DIURETIC THERAPY
     Dosage: 20 MG, QD
  8. TYVASO [Concomitant]
     Indication: VASODILATION PROCEDURE
     Route: 055
  9. LOPRESSOR [Concomitant]
     Indication: BLOOD PRESSURE
     Dosage: 12.5 MG, BID
  10. SYNTHROID [Concomitant]
     Indication: THYROID HORMONE REPLACEMENT THERAPY
     Dosage: 12.5 ?G, QD
  11. FLECAINIDE [Concomitant]
     Indication: ARRHYTHMIA
     Dosage: 100 MG, BID
  12. ULORIC [Concomitant]
     Indication: GOUT
     Dosage: 40 MG, QD
  13. INSPRA                             /01613601/ [Concomitant]
     Indication: BLOOD PRESSURE
     Dosage: 25 MG, QD

REACTIONS (1)
  - Headache [Not Recovered/Not Resolved]
